FAERS Safety Report 24524365 (Version 1)
Quarter: 2024Q4

REPORT INFORMATION
  Report Type: Other
  Country: US (occurrence: US)
  Receive Date: 20241018
  Receipt Date: 20241018
  Transmission Date: 20250114
  Serious: Yes (Death, Hospitalization, Other)
  Sender: BIONPHARMA INC.
  Company Number: US-Bion-014110

PATIENT
  Age: 61 Year
  Sex: Male

DRUGS (1)
  1. THEOPHYLLINE [Suspect]
     Active Substance: THEOPHYLLINE
     Indication: Chronic obstructive pulmonary disease

REACTIONS (8)
  - Disseminated intravascular coagulation [Fatal]
  - Toxicity to various agents [Fatal]
  - Shock [Fatal]
  - Atrial fibrillation [Fatal]
  - Generalised tonic-clonic seizure [Fatal]
  - Hypoxia [Fatal]
  - Vasodilatation [Fatal]
  - Vasoplegia syndrome [Fatal]
